FAERS Safety Report 9520873 (Version 1)
Quarter: 2013Q1

REPORT INFORMATION
  Report Type: Spontaneous
  Country: US (occurrence: None)
  Receive Date: 20130305
  Receipt Date: 20130305
  Transmission Date: 20140127
  Serious: Yes (Other)
  Sender: FDA-Public Use
  Company Number: 163-21880-12031719

PATIENT
  Age: 57 Year
  Sex: Male
  Weight: 84.82 kg

DRUGS (5)
  1. REVLIMID (LENALIDOMIDE) (25 MILLIGRAM, CAPSULES) [Suspect]
     Indication: PLASMA CELL MYELOMA
     Dosage: 25 MG, 1 IN 1 D, PO
     Route: 048
     Dates: start: 20110929
  2. ASPIRIN (ACETYLSALICYLIC ACID) (UNKNOWN) (ACETYLSALICYLIC ACID) [Concomitant]
  3. FISH OIL (FISH OIL) (UNKNOWN) [Concomitant]
  4. LORATADINE (LORATADINE) (UNKNOWN) [Concomitant]
  5. MULTIVITAMIN (MULTIPLE VITAMINS) (UNKNOWN) [Concomitant]

REACTIONS (13)
  - Pancytopenia [None]
  - White blood cell count decreased [None]
  - Red blood cell count decreased [None]
  - Platelet count decreased [None]
  - Haemoglobin decreased [None]
  - Decreased immune responsiveness [None]
  - Apathy [None]
  - Disturbance in attention [None]
  - Dyspepsia [None]
  - Neuropathy peripheral [None]
  - Rash [None]
  - Fatigue [None]
  - Blood calcium decreased [None]
